FAERS Safety Report 4439487-7 (Version None)
Quarter: 2004Q3

REPORT INFORMATION
  Report Type: 
  Country: None (occurrence: None)
  Receive Date: 20040830
  Receipt Date: 20040816
  Transmission Date: 20050211
  Serious: Yes (Hospitalization, Disabling)
  Sender: FDA-Public Use
  Company Number: 2004021869

PATIENT
  Age: 48 Year
  Sex: Female
  Weight: 50 kg

DRUGS (7)
  1. VFEND [Suspect]
     Indication: BRONCHOPULMONARY ASPERGILLOSIS
     Dosage: 400 MG (200 MG, 2 IN 1 D), ORAL
     Route: 048
     Dates: start: 20031201
  2. TACROLIMUS (TACROLIMUS) [Concomitant]
  3. PREDNISOLONE [Concomitant]
  4. RAMIPRIL [Concomitant]
  5. ALLOPURINOL (ALLOPRUNOL) [Concomitant]
  6. PRAVASTATIN [Concomitant]
  7. LANSOPRAZOLE [Concomitant]

REACTIONS (4)
  - PALPITATIONS [None]
  - RETINAL ARTERY OCCLUSION [None]
  - RETINAL HAEMORRHAGE [None]
  - RETINAL VEIN OCCLUSION [None]
